FAERS Safety Report 7238043 (Version 2)
Quarter: 2020Q3

REPORT INFORMATION
  Report Type: Report from Study
  Country: PL (occurrence: PL)
  Receive Date: 20100106
  Receipt Date: 20100121
  Transmission Date: 20201104
  Serious: Yes (Hospitalization)
  Sender: FDA-Public Use
  Company Number: PL-WYE-H12806709

PATIENT
  Age: 61 Year
  Sex: Female
  Weight: 60 kg

DRUGS (4)
  1. AVASTIN [Suspect]
     Active Substance: BEVACIZUMAB
     Indication: RENAL CELL CARCINOMA
     Route: 042
     Dates: start: 20091130, end: 20091214
  2. PIMOBENDAN [Concomitant]
     Active Substance: PIMOBENDAN
     Indication: PROPHYLAXIS
     Dosage: UNKNOWN
     Dates: start: 200910
  3. ROFERON?A [Suspect]
     Active Substance: INTERFERON ALFA-2A
     Indication: RENAL CELL CARCINOMA
     Dosage: 9 MIU THREE TIMES PER WEEK
     Route: 058
     Dates: start: 20091130, end: 20091225
  4. PARACETAMOL [Concomitant]
     Active Substance: ACETAMINOPHEN
     Indication: BODY TEMPERATURE INCREASED
     Dosage: UNKNOWN
     Dates: start: 200910

REACTIONS (1)
  - Anaemia [Recovered/Resolved]

NARRATIVE: CASE EVENT DATE: 20091228
